FAERS Safety Report 6683018-8 (Version None)
Quarter: 2010Q2

REPORT INFORMATION
  Report Type: 
  Country: None (occurrence: None)
  Receive Date: 20100415
  Receipt Date: 20100409
  Transmission Date: 20101027
  Serious: Yes (Other)
  Sender: FDA-Public Use
  Company Number: DE-B.I. PHARMACEUTICALS,INC./RIDGEFIELD-2010-DE-02082DE

PATIENT
  Sex: Male

DRUGS (4)
  1. TELMISARTAN HYDROCHLOROTHIAZDIE [Suspect]
     Indication: HYPERTENSION
     Dosage: 1 ANZ
     Route: 048
     Dates: start: 20100209, end: 20100225
  2. SAXAGLIPTIN [Suspect]
     Indication: TYPE 2 DIABETES MELLITUS
     Dosage: 5 MG
     Route: 048
     Dates: start: 20100204, end: 20100218
  3. BISOPROLOL [Concomitant]
  4. DIGITOXIN TAB [Concomitant]

REACTIONS (5)
  - ERYTHEMA [None]
  - FACE OEDEMA [None]
  - OEDEMA PERIPHERAL [None]
  - TENSION [None]
  - WEIGHT INCREASED [None]
